FAERS Safety Report 8319554-8 (Version None)
Quarter: 2012Q2

REPORT INFORMATION
  Report Type: 
  Country: None (occurrence: None)
  Receive Date: 20120427
  Receipt Date: 20120418
  Transmission Date: 20120825
  Serious: Yes (Other)
  Sender: FDA-Public Use
  Company Number: PHHY2012DE033316

PATIENT
  Age: 22 Year
  Sex: Female

DRUGS (8)
  1. PANCREATIC ENZYMES [Concomitant]
  2. PENICILLIN V [Concomitant]
  3. CLARITHROMYCIN [Concomitant]
  4. COLISTIN SULFATE [Concomitant]
  5. FLUTICASONE PROPIONATE/SALMETEROL [Concomitant]
  6. TIOTROPIUM BROMIDE [Concomitant]
  7. TOBRAMYCIN [Suspect]
     Indication: RESPIRATORY TRACT INFECTION
  8. MEROPENEM [Concomitant]
     Indication: TONSILLITIS STREPTOCOCCAL

REACTIONS (28)
  - DRUG INEFFECTIVE [None]
  - INFLAMMATION [None]
  - DYSPNOEA [None]
  - TACHYCARDIA [None]
  - ARTHRALGIA [None]
  - C-REACTIVE PROTEIN INCREASED [None]
  - COMPUTERISED TOMOGRAM ABNORMAL [None]
  - ASPERGILLUS TEST POSITIVE [None]
  - RALES [None]
  - BACTERIAL DISEASE CARRIER [None]
  - SHIFT TO THE LEFT [None]
  - INCREASED VISCOSITY OF NASAL SECRETION [None]
  - TACHYPNOEA [None]
  - PYREXIA [None]
  - ARTHRITIS [None]
  - PHARYNGITIS [None]
  - SPLENOMEGALY [None]
  - RESPIRATORY FAILURE [None]
  - OROPHARYNGEAL DISCOMFORT [None]
  - RHONCHI [None]
  - RASH [None]
  - PROCALCITONIN INCREASED [None]
  - TONSILLAR DISORDER [None]
  - LYMPHADENOPATHY [None]
  - CLUBBING [None]
  - SERUM FERRITIN INCREASED [None]
  - STILL'S DISEASE ADULT ONSET [None]
  - CANDIDA TEST POSITIVE [None]
